FAERS Safety Report 4968895-0 (Version None)
Quarter: 2006Q2

REPORT INFORMATION
  Report Type: 
  Country: None (occurrence: None)
  Receive Date: 20060411
  Receipt Date: 20050621
  Transmission Date: 20061013
  Serious: Yes (Hospitalization, Disabling)
  Sender: FDA-Public Use
  Company Number: US-MERCK-0506USA03192

PATIENT
  Age: 41 Year
  Sex: Female
  Weight: 111 kg

DRUGS (1)
  1. VIOXX [Suspect]
     Indication: ARTHRITIS
     Route: 048

REACTIONS (22)
  - ANOREXIA [None]
  - ARTHRALGIA [None]
  - BENIGN INTRACRANIAL HYPERTENSION [None]
  - CAROTID ARTERY OCCLUSION [None]
  - CARPAL TUNNEL SYNDROME [None]
  - CEREBRAL ARTERY OCCLUSION [None]
  - DEPRESSION [None]
  - DYSPNOEA [None]
  - FATIGUE [None]
  - FIBROMYALGIA [None]
  - GASTROOESOPHAGEAL REFLUX DISEASE [None]
  - HEADACHE [None]
  - HEARING IMPAIRED [None]
  - INSOMNIA [None]
  - MUSCLE SPASMS [None]
  - MYOFASCIAL PAIN SYNDROME [None]
  - NAUSEA [None]
  - PAIN [None]
  - PAIN IN EXTREMITY [None]
  - PNEUMONIA ASPIRATION [None]
  - VISUAL DISTURBANCE [None]
  - VOMITING [None]
